FAERS Safety Report 17858082 (Version 2)
Quarter: 2020Q3

REPORT INFORMATION
  Report Type: Spontaneous
  Country: FR (occurrence: FR)
  Receive Date: 20200604
  Receipt Date: 20200826
  Transmission Date: 20201103
  Serious: Yes (Other)
  Sender: FDA-Public Use
  Company Number: FR-GLAXOSMITHKLINE-FR2020092313

PATIENT
  Age: 73 Year
  Sex: Male

DRUGS (3)
  1. LOVENOX [Suspect]
     Active Substance: ENOXAPARIN SODIUM
     Indication: CORONAVIRUS INFECTION
     Dosage: UNK
     Route: 058
     Dates: start: 20200414, end: 20200504
  2. VENTOLIN [Suspect]
     Active Substance: ALBUTEROL SULFATE
     Indication: CORONAVIRUS INFECTION
     Dosage: UNK
     Route: 055
     Dates: start: 20200419
  3. XENETIX [Suspect]
     Active Substance: IOBITRIDOL
     Indication: SCAN
     Dosage: 1 DF
     Route: 042
     Dates: start: 20200415

REACTIONS (1)
  - Eosinophilia [Not Recovered/Not Resolved]

NARRATIVE: CASE EVENT DATE: 20200420
